APPROVED DRUG PRODUCT: METHOTREXATE PRESERVATIVE FREE
Active Ingredient: METHOTREXATE SODIUM
Strength: EQ 2.5GM BASE/100ML (EQ 25MG BASE/ML)
Dosage Form/Route: INJECTABLE;INJECTION
Application: N011719 | Product #011
Applicant: HOSPIRA INC
Approved: Apr 13, 2005 | RLD: Yes | RS: No | Type: DISCN